FAERS Safety Report 23344834 (Version 1)
Quarter: 2023Q4

REPORT INFORMATION
  Report Type: Other
  Country: US (occurrence: None)
  Receive Date: 20231228
  Receipt Date: 20231228
  Transmission Date: 20240109
  Serious: Yes (Hospitalization)
  Sender: FDA-Public Use
  Company Number: US-ROCHE-3481528

PATIENT
  Age: 73 Year
  Sex: Male

DRUGS (6)
  1. TECENTRIQ [Suspect]
     Active Substance: ATEZOLIZUMAB
     Indication: Malignant melanoma
     Dosage: DAY 1 AND DAY 15 EVERY 28 DAYS
     Route: 041
  2. TECENTRIQ [Suspect]
     Active Substance: ATEZOLIZUMAB
     Indication: Neoplasm malignant
  3. ZELBORAF [Suspect]
     Active Substance: VEMURAFENIB
     Indication: Malignant melanoma
     Route: 048
  4. ZELBORAF [Suspect]
     Active Substance: VEMURAFENIB
     Indication: Neoplasm malignant
  5. COTELLIC [Suspect]
     Active Substance: COBIMETINIB
     Indication: Malignant melanoma
     Dosage: TAKE 3 TABLET(S) BY MOUTH EVERY DAY FOR 21 DAYS THEN 7 DAYS OFF EVERY 28 DAY(S)
     Route: 048
  6. COTELLIC [Suspect]
     Active Substance: COBIMETINIB
     Indication: Neoplasm malignant

REACTIONS (1)
  - Cerebral haemorrhage [Unknown]
